FAERS Safety Report 13227715 (Version 1)
Quarter: 2017Q1

REPORT INFORMATION
  Report Type: Spontaneous
  Country: US (occurrence: US)
  Receive Date: 20170213
  Receipt Date: 20170213
  Transmission Date: 20170428
  Serious: No
  Sender: FDA-Public Use
  Company Number: US-009507513-1701USA008490

PATIENT
  Sex: Female
  Weight: 74.38 kg

DRUGS (1)
  1. NEXPLANON [Suspect]
     Active Substance: ETONOGESTREL
     Indication: CONTRACEPTION
     Dosage: 1 IMPLANT/ 3 YEARS, UNK
     Route: 059
     Dates: end: 20170116

REACTIONS (3)
  - Menstruation irregular [Recovering/Resolving]
  - Device breakage [Recovered/Resolved]
  - Muscle spasms [Recovering/Resolving]
